FAERS Safety Report 11185437 (Version 1)
Quarter: 2015Q2

REPORT INFORMATION
  Report Type: Spontaneous
  Country: BR (occurrence: BR)
  Receive Date: 20150612
  Receipt Date: 20150612
  Transmission Date: 20150821
  Serious: Yes (Other)
  Sender: FDA-Public Use
  Company Number: BR-BAYER-2015-334219

PATIENT
  Age: 44 Year
  Sex: Female

DRUGS (2)
  1. UROGRAFINA [Suspect]
     Active Substance: DIATRIZOATE MEGLUMINE\DIATRIZOATE SODIUM
     Route: 042
  2. ULTRAVIST [Suspect]
     Active Substance: IOPROMIDE
     Route: 042

REACTIONS (9)
  - Livedo reticularis [Unknown]
  - Haematoma [Unknown]
  - Muscular weakness [Unknown]
  - Pain [Unknown]
  - Impaired work ability [None]
  - Phlebitis [Unknown]
  - Erythema [Unknown]
  - Formication [Unknown]
  - Oedema [Unknown]
